FAERS Safety Report 17580888 (Version 1)
Quarter: 2020Q1

REPORT INFORMATION
  Report Type: Spontaneous
  Country: IT (occurrence: IT)
  Receive Date: 20200325
  Receipt Date: 20200325
  Transmission Date: 20200409
  Serious: Yes (Other)
  Sender: FDA-Public Use
  Company Number: IT-BRISTOL-MYERS SQUIBB COMPANY-BMS-2020-024205

PATIENT
  Age: 90 Year
  Sex: Female

DRUGS (8)
  1. ELIQUIS [Suspect]
     Active Substance: APIXABAN
     Indication: CEREBROVASCULAR ACCIDENT PROPHYLAXIS
     Dosage: 10 MILLIGRAM DAILY
     Route: 065
  2. MONOCINQUE [Concomitant]
     Active Substance: ISOSORBIDE MONONITRATE
     Indication: PRODUCT USED FOR UNKNOWN INDICATION
     Dosage: 60 MILLIGRAM DAILY
     Route: 065
  3. IBUPROFENE [Suspect]
     Active Substance: IBUPROFEN
     Indication: ARTHRALGIA
     Dosage: 1200 MILLIGRAM DAILY
     Route: 065
     Dates: start: 20200301, end: 20200308
  4. LASIX [Concomitant]
     Active Substance: FUROSEMIDE
     Indication: HYPERTENSION
     Dosage: 25 MILLIGRAM, DAILY
     Route: 065
  5. LANSOPRAZOLE. [Concomitant]
     Active Substance: LANSOPRAZOLE
     Indication: PRODUCT USED FOR UNKNOWN INDICATION
     Dosage: 15 MILLIGRAM
     Route: 065
  6. TRIATEC [HYDROCHLOROTHIAZIDE;RAMIPRIL] [Concomitant]
     Indication: HYPERTENSION
     Dosage: 2.5 MILLIGRAM DAILY
     Route: 065
  7. TORVAST [Concomitant]
     Active Substance: ATORVASTATIN
     Indication: DYSLIPIDAEMIA
     Dosage: UNK
     Route: 065
  8. CARDICOR [Concomitant]
     Active Substance: BISOPROLOL
     Indication: ATRIAL FIBRILLATION
     Dosage: 1.25 MILLIGRAM, DAILY
     Route: 065

REACTIONS (2)
  - Asthenia [Recovering/Resolving]
  - Pallor [Recovering/Resolving]

NARRATIVE: CASE EVENT DATE: 20200305
